FAERS Safety Report 10287280 (Version 1)
Quarter: 2014Q3

REPORT INFORMATION
  Report Type: Spontaneous
  Country: US (occurrence: US)
  Receive Date: 20140709
  Receipt Date: 20140709
  Transmission Date: 20150326
  Serious: Yes (Other)
  Sender: FDA-Public Use
  Company Number: US-MALLINCKRODT-T201402232

PATIENT
  Age: 76 Year
  Sex: Female
  Weight: 49.89 kg

DRUGS (5)
  1. MORPHINE SULFATE. [Suspect]
     Active Substance: MORPHINE SULFATE
     Indication: PRODUCT USED FOR UNKNOWN INDICATION
     Dosage: SIX 1 ML DOSES
     Route: 048
     Dates: start: 20140513, end: 20140514
  2. MORPHINE SULFATE. [Suspect]
     Active Substance: MORPHINE SULFATE
     Indication: ANXIETY
     Dosage: 0.25 ML
     Route: 048
     Dates: start: 20140512, end: 20140512
  3. XANAX [Concomitant]
     Active Substance: ALPRAZOLAM
     Indication: ANXIETY
     Dosage: 0.5 MG, UNK
     Route: 048
  4. HALDOL [Concomitant]
     Active Substance: HALOPERIDOL
     Dosage: UNK
  5. HYDROCODONE [Concomitant]
     Active Substance: HYDROCODONE
     Indication: PAIN
     Dosage: UNK

REACTIONS (6)
  - Overdose [Recovering/Resolving]
  - Urinary retention [Recovering/Resolving]
  - Blood pressure decreased [Unknown]
  - Intentional product misuse [Recovered/Resolved]
  - Pruritus [Unknown]
  - Unresponsive to stimuli [Not Recovered/Not Resolved]

NARRATIVE: CASE EVENT DATE: 20140512
